FAERS Safety Report 9503767 (Version 3)
Quarter: 2013Q4

REPORT INFORMATION
  Report Type: Spontaneous
  Country: US (occurrence: US)
  Receive Date: 20130906
  Receipt Date: 20131111
  Transmission Date: 20140711
  Serious: Yes (Life-Threatening, Other)
  Sender: FDA-Public Use
  Company Number: US-PFIZER INC-2013252605

PATIENT
  Age: 74 Year
  Sex: Male

DRUGS (1)
  1. SUTENT [Suspect]
     Indication: MALIGNANT URINARY TRACT NEOPLASM
     Dosage: 50 MG QD, 4 WKS ON, OFF 2 WKS, CYCLIC
     Route: 048
     Dates: start: 20121211, end: 20130716

REACTIONS (3)
  - Renal failure [Unknown]
  - Disease progression [Unknown]
  - Malignant urinary tract neoplasm [Unknown]
